FAERS Safety Report 5289689-5 (Version None)
Quarter: 2007Q2

REPORT INFORMATION
  Report Type: 
  Country: None (occurrence: None)
  Receive Date: 20070406
  Receipt Date: 20070322
  Transmission Date: 20071010
  Serious: Yes (Hospitalization)
  Sender: FDA-Public Use
  Company Number: IL-GENENTECH-239399

PATIENT
  Age: 68 Year
  Sex: Female
  Weight: 83.5 kg

DRUGS (3)
  1. AVASTIN [Suspect]
     Indication: COLON CANCER METASTATIC
     Dosage: 630 ML, Q3W
     Route: 042
     Dates: start: 20070130
  2. CAPECITABINE [Suspect]
     Indication: COLON CANCER METASTATIC
     Dosage: 3.5 G, UNK
     Route: 048
     Dates: start: 20070130
  3. IRINOTECAN HCL [Concomitant]
     Indication: COLON CANCER METASTATIC
     Dates: start: 20070130

REACTIONS (3)
  - CHEST PAIN [None]
  - HYPERTENSION [None]
  - STRESS CARDIOMYOPATHY [None]
